FAERS Safety Report 7241468-5 (Version None)
Quarter: 2011Q1

REPORT INFORMATION
  Report Type: 
  Country: None (occurrence: None)
  Receive Date: 20110124
  Receipt Date: 20110117
  Transmission Date: 20110831
  Serious: Yes (Other)
  Sender: FDA-Public Use
  Company Number: DE-BAXTER-2010BH029034

PATIENT
  Age: 45 Year
  Sex: Female
  Weight: 66 kg

DRUGS (4)
  1. TAXOTERE [Suspect]
     Indication: BREAST CANCER FEMALE
     Route: 042
     Dates: start: 20101012, end: 20101012
  2. ZOFRAN [Suspect]
     Indication: BREAST CANCER FEMALE
     Route: 042
     Dates: start: 20101012, end: 20101012
  3. CYCLOPHOSPHAMIDE [Suspect]
     Indication: BREAST CANCER FEMALE
     Dosage: 1X 1080 MG I.V. ON 12 OCT 2010
     Route: 042
     Dates: start: 20101012, end: 20101012
  4. UROMITEXAN BAXTER [Suspect]
     Indication: BREAST CANCER FEMALE
     Route: 048
     Dates: start: 20101012, end: 20101012

REACTIONS (1)
  - HEPATITIS ACUTE [None]
